FAERS Safety Report 20483108 (Version 1)
Quarter: 2022Q1

REPORT INFORMATION
  Report Type: Spontaneous
  Country: US (occurrence: US)
  Receive Date: 20220217
  Receipt Date: 20220217
  Transmission Date: 20220424
  Serious: Yes (Life-Threatening, Hospitalization, Other)
  Sender: FDA-Public Use
  Company Number: US-BION-010306

PATIENT
  Age: 28 Year
  Sex: Male

DRUGS (1)
  1. LOPERAMIDE HYDROCHLORIDE [Suspect]
     Active Substance: LOPERAMIDE HYDROCHLORIDE
     Indication: Withdrawal syndrome
     Dosage: 100 CAPSULES (200 MG) OF LOPERAMIDE DAILY

REACTIONS (4)
  - Overdose [Unknown]
  - Ventricular tachycardia [Unknown]
  - Torsade de pointes [Unknown]
  - Product use in unapproved indication [Unknown]
